FAERS Safety Report 7009996-5 (Version None)
Quarter: 2010Q3

REPORT INFORMATION
  Report Type: 
  Country: None (occurrence: None)
  Receive Date: 20100923
  Receipt Date: 20100916
  Transmission Date: 20110219
  Serious: Yes (Other)
  Sender: FDA-Public Use
  Company Number: US-US-EMD SERONO, INC.-7009639

PATIENT
  Sex: Female

DRUGS (3)
  1. REBIF [Suspect]
     Indication: MULTIPLE SCLEROSIS
     Route: 058
     Dates: start: 20030515
  2. BENICAR [Concomitant]
     Indication: HYPERTENSION
  3. DYNACIRC [Concomitant]
     Indication: HYPERTENSION

REACTIONS (2)
  - BREAST CANCER IN SITU [None]
  - HEPATIC ENZYME INCREASED [None]
